FAERS Safety Report 11722848 (Version 1)
Quarter: 2015Q4

REPORT INFORMATION
  Report Type: Spontaneous
  Country: US (occurrence: US)
  Receive Date: 20151111
  Receipt Date: 20151111
  Transmission Date: 20160304
  Serious: Yes (Other)
  Sender: FDA-Public Use
  Company Number: US-LUNDBECK-DKLU2006228

PATIENT
  Age: 38 Year
  Sex: Female

DRUGS (4)
  1. ONFI [Suspect]
     Active Substance: CLOBAZAM
     Route: 048
     Dates: start: 201509, end: 20151031
  2. ONFI [Suspect]
     Active Substance: CLOBAZAM
     Route: 048
     Dates: start: 20151031
  3. UNSPECIFIED ALLERGY MEDICATION [Concomitant]
     Indication: HYPERSENSITIVITY
     Route: 065
  4. ONFI [Suspect]
     Active Substance: CLOBAZAM
     Indication: MYOCLONUS
     Route: 048
     Dates: start: 2013, end: 201509

REACTIONS (4)
  - Aphasia [Recovered/Resolved]
  - Paralysis [Recovered/Resolved]
  - Diplopia [Recovered/Resolved]
  - Eye disorder [Recovered/Resolved]

NARRATIVE: CASE EVENT DATE: 20151031
